FAERS Safety Report 9305939 (Version 1)
Quarter: 2013Q2

REPORT INFORMATION
  Report Type: Report from Study
  Country: US (occurrence: US)
  Receive Date: 20130523
  Receipt Date: 20130523
  Transmission Date: 20140414
  Serious: Yes (Death, Other)
  Sender: FDA-Public Use
  Company Number: US-ROCHE-1226679

PATIENT
  Sex: 0

DRUGS (8)
  1. VISMODEGIB [Suspect]
     Indication: GASTRIC CANCER
     Route: 048
  2. VISMODEGIB [Suspect]
     Indication: GASTROOESOPHAGEAL CANCER
  3. OXALIPLATIN [Suspect]
     Indication: GASTRIC CANCER
     Route: 065
  4. OXALIPLATIN [Suspect]
     Indication: GASTROOESOPHAGEAL CANCER
  5. LEUCOVORIN CALCIUM [Suspect]
     Indication: GASTRIC CANCER
     Route: 065
  6. LEUCOVORIN CALCIUM [Suspect]
     Indication: GASTROOESOPHAGEAL CANCER
  7. 5-FU [Suspect]
     Indication: GASTRIC CANCER
     Route: 040
  8. 5-FU [Suspect]
     Indication: GASTROOESOPHAGEAL CANCER
     Route: 065

REACTIONS (9)
  - Death [Fatal]
  - Neutropenia [Unknown]
  - Neuropathy peripheral [Unknown]
  - Fatigue [Unknown]
  - Thrombosis [Unknown]
  - Anaemia [Unknown]
  - Gastrointestinal haemorrhage [Unknown]
  - Hypokalaemia [Unknown]
  - Nausea [Unknown]
